FAERS Safety Report 21166792 (Version 3)
Quarter: 2023Q1

REPORT INFORMATION
  Report Type: Spontaneous
  Country: US (occurrence: US)
  Receive Date: 20220803
  Receipt Date: 20230110
  Transmission Date: 20230418
  Serious: Yes (Other)
  Sender: FDA-Public Use
  Company Number: US-PFIZER INC-202101507077

PATIENT
  Age: 71 Year
  Sex: Female

DRUGS (1)
  1. IBRANCE [Suspect]
     Active Substance: PALBOCICLIB
     Indication: Bone cancer
     Dosage: 75 MG, CYCLIC (1 TAB PO DAILY X 14 DAYS ON 7 DAYS OFF)
     Route: 048

REACTIONS (3)
  - Myocardial infarction [Recovered/Resolved]
  - Off label use [Unknown]
  - Off label use [Unknown]
